FAERS Safety Report 19996245 (Version 1)
Quarter: 2021Q4

REPORT INFORMATION
  Report Type: Spontaneous
  Country: US (occurrence: US)
  Receive Date: 20211026
  Receipt Date: 20211026
  Transmission Date: 20220303
  Serious: No
  Sender: FDA-Public Use
  Company Number: US-PFIZER INC-2021075901

PATIENT
  Age: 86 Year
  Sex: Female

DRUGS (1)
  1. IBRANCE [Suspect]
     Active Substance: PALBOCICLIB
     Dosage: 75 MG (TWO WEEKS ON AND TWO WEEKS OFF)

REACTIONS (3)
  - Off label use [Unknown]
  - Product use issue [Unknown]
  - Fatigue [Unknown]
